FAERS Safety Report 12862805 (Version 1)
Quarter: 2016Q4

REPORT INFORMATION
  Report Type: Spontaneous
  Country: US (occurrence: US)
  Receive Date: 20161019
  Receipt Date: 20161019
  Transmission Date: 20170207
  Serious: No
  Sender: FDA-Public Use
  Company Number: US-B.I. PHARMACEUTICALS,INC./RIDGEFIELD-2016-BI-063815

PATIENT
  Age: 85 Year
  Sex: Male

DRUGS (5)
  1. PRADAXA [Suspect]
     Active Substance: DABIGATRAN ETEXILATE MESYLATE
     Indication: ATRIAL FIBRILLATION
     Dosage: ADMINISTRATION CORRECT? YES ACTION TAKEN: DRUG WAS WITHDRAWN
     Route: 048
     Dates: start: 201210, end: 201511
  2. IRBESARTAN-HYDROCHLOROTHIAZIDE [Concomitant]
     Indication: HYPERTENSION
     Dosage: FORM STRENGTH: 150/12.5MG
     Route: 048
     Dates: start: 2006
  3. PRADAXA [Suspect]
     Active Substance: DABIGATRAN ETEXILATE MESYLATE
     Dosage: ADMINISTRATION CORRECT? YES ?ACTION(S) TAKEN WITH PRODUCT: DOSE NOT CHANGED
     Route: 048
     Dates: start: 201601
  4. XARELTO [Concomitant]
     Active Substance: RIVAROXABAN
     Indication: PRODUCT USED FOR UNKNOWN INDICATION
     Route: 065
  5. METOPROLOL. [Concomitant]
     Active Substance: METOPROLOL
     Indication: HEART RATE INCREASED
     Route: 048
     Dates: start: 201211

REACTIONS (4)
  - Gingival bleeding [Recovered/Resolved]
  - Blood urine present [Recovered/Resolved]
  - Blood glucose increased [Unknown]
  - Abdominal discomfort [Unknown]

NARRATIVE: CASE EVENT DATE: 2013
